FAERS Safety Report 8334514-9 (Version None)
Quarter: 2012Q2

REPORT INFORMATION
  Report Type: 
  Country: None (occurrence: None)
  Receive Date: 20120503
  Receipt Date: 20120430
  Transmission Date: 20120825
  Serious: Yes (Hospitalization, Other)
  Sender: FDA-Public Use
  Company Number: PHEH2012US006723

PATIENT
  Sex: Female
  Weight: 56.689 kg

DRUGS (6)
  1. PRILOSEC [Concomitant]
     Dosage: 20 MG, BID
  2. PROVIGIL [Concomitant]
     Dosage: 200 MG, UNK
  3. SEASONALE [Concomitant]
     Dosage: UNK
  4. FAMPRIDINE [Concomitant]
     Dosage: 10 BQ, UNK
  5. DITROPAN XL [Concomitant]
     Dosage: 10 MG, UNK
  6. GILENYA [Suspect]
     Indication: RELAPSING-REMITTING MULTIPLE SCLEROSIS
     Dosage: 0.5 MG, QD
     Route: 048
     Dates: start: 20120322

REACTIONS (1)
  - HYPOTENSION [None]
